APPROVED DRUG PRODUCT: METHYCLOTHIAZIDE
Active Ingredient: METHYCLOTHIAZIDE
Strength: 5MG
Dosage Form/Route: TABLET;ORAL
Application: A087672 | Product #001
Applicant: PHARMOBEDIENT CONSULTING LLC
Approved: Aug 17, 1982 | RLD: No | RS: No | Type: DISCN